FAERS Safety Report 11808039 (Version 2)
Quarter: 2016Q1

REPORT INFORMATION
  Report Type: Report from Study
  Country: IT (occurrence: IT)
  Receive Date: 20151207
  Receipt Date: 20160210
  Transmission Date: 20160525
  Serious: Yes (Other)
  Sender: FDA-Public Use
  Company Number: PHHY2015IT094035

PATIENT
  Age: 28 Year
  Sex: Female

DRUGS (1)
  1. GILENYA [Suspect]
     Active Substance: FINGOLIMOD HYDROCHLORIDE
     Indication: MULTIPLE SCLEROSIS
     Dosage: UNK UNK, QD
     Route: 048

REACTIONS (5)
  - Lymphocyte count decreased [Not Recovered/Not Resolved]
  - Alanine aminotransferase decreased [Unknown]
  - Nausea [Recovered/Resolved]
  - Dizziness [Unknown]
  - Dysentery [Recovered/Resolved]

NARRATIVE: CASE EVENT DATE: 20140723
